FAERS Safety Report 6558095-5 (Version None)
Quarter: 2010Q1

REPORT INFORMATION
  Report Type: 
  Country: None (occurrence: None)
  Receive Date: 20100129
  Receipt Date: 20100125
  Transmission Date: 20100710
  Serious: Yes (Hospitalization)
  Sender: FDA-Public Use
  Company Number: A0811409A

PATIENT
  Age: 65 Year
  Sex: Female

DRUGS (19)
  1. ADVAIR DISKUS 100/50 [Suspect]
     Indication: ASTHMA
     Dosage: 1PUFF TWICE PER DAY
     Route: 055
     Dates: start: 20050101
  2. ATROVENT [Concomitant]
  3. LANOXIN [Concomitant]
  4. WARFARIN SODIUM [Concomitant]
  5. BENAZEPRIL HYDROCHLORIDE [Concomitant]
  6. PRILOSEC [Concomitant]
  7. TRANSDERM SCOP [Concomitant]
  8. THYROID TAB [Concomitant]
  9. BETAPACE [Concomitant]
  10. METANX [Concomitant]
  11. FLONASE [Concomitant]
  12. ARICEPT [Concomitant]
  13. ALPHAGAN [Concomitant]
  14. GLAUCOMA EYE DROPS (UNSPECIFIED) [Concomitant]
  15. FEXOFENADINE [Concomitant]
  16. VICODIN ES [Concomitant]
  17. PREMARIN [Concomitant]
  18. SINGULAIR [Concomitant]
  19. SOMA [Concomitant]

REACTIONS (5)
  - ASTHMA [None]
  - DRUG ADMINISTRATION ERROR [None]
  - INFLUENZA [None]
  - LOBAR PNEUMONIA [None]
  - TREATMENT NONCOMPLIANCE [None]
